FAERS Safety Report 12468123 (Version 5)
Quarter: 2016Q3

REPORT INFORMATION
  Report Type: Report from Study
  Country: US (occurrence: US)
  Receive Date: 20160615
  Receipt Date: 20160816
  Transmission Date: 20161109
  Serious: No
  Sender: FDA-Public Use
  Company Number: PHEH2016US013825

PATIENT
  Sex: Male
  Weight: 142.86 kg

DRUGS (1)
  1. COSENTYX [Suspect]
     Active Substance: SECUKINUMAB
     Indication: PRODUCT USED FOR UNKNOWN INDICATION
     Dosage: 300 MG, QW
     Route: 058
     Dates: start: 20160517

REACTIONS (12)
  - Abdominal pain [Unknown]
  - Rash [Unknown]
  - Diarrhoea [Recovered/Resolved]
  - Hypersensitivity [Unknown]
  - Gastritis [Unknown]
  - Drug hypersensitivity [Recovering/Resolving]
  - Gastrointestinal infection [Unknown]
  - Pain [Unknown]
  - Dehydration [Recovering/Resolving]
  - Nausea [Unknown]
  - Middle insomnia [Unknown]
  - Sinusitis [Not Recovered/Not Resolved]
